FAERS Safety Report 18101537 (Version 1)
Quarter: 2020Q3

REPORT INFORMATION
  Report Type: Report from Study
  Country: TW (occurrence: TW)
  Receive Date: 20200801
  Receipt Date: 20200801
  Transmission Date: 20201103
  Serious: Yes (Hospitalization, Other)
  Sender: FDA-Public Use
  Company Number: NVSC2020TW150195

PATIENT
  Age: 61 Year
  Sex: Female
  Weight: 50.8 kg

DRUGS (7)
  1. TRAMETINIB [Suspect]
     Active Substance: TRAMETINIB
     Indication: COLORECTAL ADENOCARCINOMA
     Dosage: 2 OT, QD
     Route: 048
     Dates: start: 20200406, end: 20200524
  2. BETAMETHASONE. [Concomitant]
     Active Substance: BETAMETHASONE
     Indication: PRODUCT USED FOR UNKNOWN INDICATION
     Dosage: 4 MG, QD
     Route: 065
  3. CETUXIMAB. [Concomitant]
     Active Substance: CETUXIMAB
     Indication: COLORECTAL CANCER METASTATIC
     Dosage: UNK UNK, Q2W (ONE MONTH DAILY)
     Route: 065
     Dates: start: 20200406, end: 20200513
  4. DABRAFENIB [Suspect]
     Active Substance: DABRAFENIB
     Indication: COLORECTAL ADENOCARCINOMA
     Dosage: 75 OT, BID
     Route: 048
     Dates: start: 20200406, end: 20200524
  5. PARAMOL [Concomitant]
     Indication: PRODUCT USED FOR UNKNOWN INDICATION
     Dosage: UNK
     Route: 065
  6. RIVAROXABAN [Concomitant]
     Active Substance: RIVAROXABAN
     Indication: PRODUCT USED FOR UNKNOWN INDICATION
     Dosage: 15 MG, QD FOR 8 MONTHS
     Route: 065
  7. RABEPRAZOLE [Concomitant]
     Active Substance: RABEPRAZOLE
     Indication: PRODUCT USED FOR UNKNOWN INDICATION
     Dosage: 20 MG, QD FOR  3 MONTHS
     Route: 065

REACTIONS (3)
  - Pyrexia [Recovered/Resolved]
  - Colorectal adenocarcinoma [Recovered/Resolved]
  - Malignant neoplasm progression [Recovered/Resolved]

NARRATIVE: CASE EVENT DATE: 20200525
